FAERS Safety Report 10211131 (Version 1)
Quarter: 2014Q2

REPORT INFORMATION
  Report Type: Spontaneous
  Country: US (occurrence: None)
  Receive Date: 20140530
  Receipt Date: 20140530
  Transmission Date: 20141212
  Serious: Yes (Hospitalization)
  Sender: FDA-Public Use
  Company Number: None

PATIENT
  Age: 69 Year
  Sex: Male
  Weight: 130 kg

DRUGS (1)
  1. MINOCYCLINE HCL 100 MG CAP NDC#00093-3167-53 [Suspect]
     Indication: INFECTION
     Dosage: DOXYCYCLINE 100MG 2 DAILY, ORAL
     Route: 048
     Dates: start: 201201, end: 20130305

REACTIONS (3)
  - Dyspnoea [None]
  - Pneumonia [None]
  - Emphysema [None]
